FAERS Safety Report 7815513-X (Version None)
Quarter: 2011Q4

REPORT INFORMATION
  Report Type: 
  Country: None (occurrence: None)
  Receive Date: 20111014
  Receipt Date: 20111007
  Transmission Date: 20120403
  Serious: Yes (Other)
  Sender: FDA-Public Use
  Company Number: US-BRISTOL-MYERS SQUIBB COMPANY-16143653

PATIENT
  Age: 50 Year
  Sex: Male
  Weight: 82 kg

DRUGS (3)
  1. NORVIR [Suspect]
  2. REYATAZ [Suspect]
     Dosage: 200MG (TIMES TWO PILLS; ONCE DAILY
     Dates: end: 20100601
  3. TRUVADA [Suspect]

REACTIONS (3)
  - DIZZINESS [None]
  - JAUNDICE [None]
  - FEELING ABNORMAL [None]
